FAERS Safety Report 9265008 (Version 1)
Quarter: 2013Q2

REPORT INFORMATION
  Report Type: Spontaneous
  Country: US (occurrence: None)
  Receive Date: 20130430
  Receipt Date: 20130430
  Transmission Date: 20140414
  Serious: Yes (Other)
  Sender: FDA-Public Use
  Company Number: None

PATIENT
  Sex: Female
  Weight: 53.98 kg

DRUGS (2)
  1. VALACYCLOVIR [Suspect]
     Indication: ABDOMINAL DISCOMFORT
     Route: 048
     Dates: start: 20130313
  2. VALACYCLOVIR [Suspect]
     Indication: ADVERSE DRUG REACTION
     Route: 048
     Dates: start: 20130313

REACTIONS (1)
  - Abdominal discomfort [None]
